FAERS Safety Report 6400863-4 (Version None)
Quarter: 2009Q4

REPORT INFORMATION
  Report Type: 
  Country: None (occurrence: None)
  Receive Date: 20091009
  Receipt Date: 20090329
  Transmission Date: 20100525
  Serious: Yes (Death, Other)
  Sender: FDA-Public Use
  Company Number: 140623

PATIENT
  Sex: Male
  Weight: 120.2 kg

DRUGS (1)
  1. METHOTREXATE [Suspect]
     Indication: BURKITT'S LYMPHOMA

REACTIONS (2)
  - DEATH [None]
  - RENAL FAILURE ACUTE [None]
